FAERS Safety Report 4392527-6 (Version None)
Quarter: 2004Q3

REPORT INFORMATION
  Report Type: 
  Country: None (occurrence: None)
  Receive Date: 20040702
  Receipt Date: 20040309
  Transmission Date: 20050211
  Serious: Yes (Other)
  Sender: FDA-Public Use
  Company Number: 2004UW03379

PATIENT
  Sex: Male

DRUGS (2)
  1. CRESTOR [Suspect]
  2. TOPROL-XL [Suspect]
     Dosage: 100 MG QD PO
     Route: 048

REACTIONS (6)
  - ABNORMAL SENSATION IN EYE [None]
  - DRUG INTERACTION [None]
  - EYE PAIN [None]
  - EYE REDNESS [None]
  - PHOTOPHOBIA [None]
  - VISION BLURRED [None]
